FAERS Safety Report 5496829-1 (Version None)
Quarter: 2007Q4

REPORT INFORMATION
  Report Type: 
  Country: None (occurrence: None)
  Receive Date: 20071023
  Receipt Date: 20071023
  Transmission Date: 20080405
  Serious: No
  Sender: FDA-Public Use
  Company Number: None

PATIENT
  Age: 40 Year
  Sex: Female

DRUGS (1)
  1. TRI-NORINYL 21-DAY [Suspect]
     Dates: start: 19940401, end: 19970801

REACTIONS (2)
  - INFERTILITY FEMALE [None]
  - METRORRHAGIA [None]
